FAERS Safety Report 19838364 (Version 1)
Quarter: 2021Q3

REPORT INFORMATION
  Report Type: Report from Study
  Country: BG (occurrence: BG)
  Receive Date: 20210916
  Receipt Date: 20210916
  Transmission Date: 20211014
  Serious: Yes (Hospitalization)
  Sender: FDA-Public Use
  Company Number: BG-CELLTRION INC.-2021BG012301

PATIENT

DRUGS (16)
  1. PERTUZUMAB. [Suspect]
     Active Substance: PERTUZUMAB
     Indication: BREAST CANCER METASTATIC
     Dosage: 840 MG, 1X/DAY (MOST RECENT DOSE PRIOR TO THE EVENT: 21/AUG/2019 AND 11/SEP/2019)
     Route: 042
     Dates: start: 20190821, end: 20190821
  2. LOPERAMID [Concomitant]
     Active Substance: LOPERAMIDE
     Indication: DIARRHOEA
     Dosage: UNK
     Route: 065
     Dates: start: 20190828, end: 20190830
  3. METHYLPREDNISOLON [METHYLPREDNISOLONE] [Concomitant]
     Active Substance: METHYLPREDNISOLONE
     Indication: NEUTROPENIA
     Dosage: UNK
     Route: 065
     Dates: start: 20190828, end: 20190830
  4. FILGRASTIM [Concomitant]
     Active Substance: FILGRASTIM
     Indication: NEUTROPENIA
     Dosage: UNK
     Route: 065
     Dates: start: 20190828, end: 20190829
  5. ZOLEDRONIC ACID [Suspect]
     Active Substance: ZOLEDRONIC ACID
     Indication: BREAST CANCER METASTATIC
     Dosage: 4 MG, MONTHLY
     Route: 042
     Dates: start: 20190822
  6. EXEMESTANE. [Concomitant]
     Active Substance: EXEMESTANE
     Dosage: 25 MG, 1X/DAY
     Route: 048
     Dates: start: 20200111, end: 20200625
  7. ENTEROL [SACCHAROMYCES BOULARDII] [Concomitant]
     Active Substance: SACCHAROMYCES CEREVISIAE
     Indication: DIARRHOEA
     Dosage: UNK
     Route: 065
     Dates: start: 20190828, end: 20190830
  8. CEFTRIAXONE. [Concomitant]
     Active Substance: CEFTRIAXONE
     Indication: DIARRHOEA
     Dosage: UNK
     Dates: start: 20190828, end: 20190830
  9. TRASTUZUMAB RECOMBINANT [Suspect]
     Active Substance: TRASTUZUMAB
     Indication: BREAST CANCER METASTATIC
     Dosage: 600 MG, EVERY 3 WEEKS
     Route: 058
     Dates: start: 20190821
  10. PERIOLIMEL N4E [Concomitant]
     Indication: NEUTROPENIA
     Dosage: UNK
     Dates: start: 20190828, end: 20190828
  11. DEXAMETHAZONE [Concomitant]
     Active Substance: DEXAMETHASONE
     Indication: NEUTROPENIA
     Dosage: UNK
     Route: 065
     Dates: start: 20190920, end: 20190921
  12. CONCOR [Concomitant]
     Active Substance: BISOPROLOL FUMARATE
     Dosage: UNK
     Route: 065
     Dates: start: 20130615
  13. DOCETAXEL. [Suspect]
     Active Substance: DOCETAXEL
     Indication: BREAST CANCER METASTATIC
     Dosage: 75 MG/M2, 1X/DAY (MOST RECENT DOSE PRIOR TO THE EVENT: 21/AUG/2019 AND 11/SEP/2019)
     Route: 042
     Dates: start: 20190821, end: 20190821
  14. TRASTUZUMAB. [Suspect]
     Active Substance: TRASTUZUMAB
     Indication: BREAST CANCER METASTATIC
     Dosage: 600 MG, EVERY 3 WEEKS
     Route: 058
     Dates: start: 20190821, end: 20200528
  15. XGEVA [Concomitant]
     Active Substance: DENOSUMAB
     Dosage: 120 MG, MONTHLY
     Route: 058
     Dates: start: 20200626
  16. FILGRASTIM [Concomitant]
     Active Substance: FILGRASTIM
     Dosage: UNK
     Route: 065
     Dates: start: 20190920, end: 20190920

REACTIONS (6)
  - Overdose [Unknown]
  - White blood cell count decreased [Recovered/Resolved]
  - Diarrhoea [Recovered/Resolved]
  - Product use issue [Unknown]
  - Neutropenia [Recovered/Resolved]
  - Stomatitis [Recovered/Resolved]

NARRATIVE: CASE EVENT DATE: 20190823
